FAERS Safety Report 12479279 (Version 1)
Quarter: 2016Q2

REPORT INFORMATION
  Report Type: Spontaneous
  Country: US (occurrence: None)
  Receive Date: 20160617
  Receipt Date: 20160617
  Transmission Date: 20160815
  Serious: No
  Sender: FDA-Public Use
  Company Number: None

PATIENT
  Age: 67 Year
  Sex: Male

DRUGS (21)
  1. AMLODIPINE [Concomitant]
     Active Substance: AMLODIPINE BESYLATE
  2. HYDROCO/APAP [Concomitant]
     Active Substance: ACETAMINOPHEN\HYDROCODONE
  3. STOOL SOFTNR [Concomitant]
  4. ZOLPIDEM [Concomitant]
     Active Substance: ZOLPIDEM\ZOLPIDEM TARTRATE
  5. LUPRON DEPOT [Concomitant]
     Active Substance: LEUPROLIDE ACETATE
  6. ZYTIGA [Suspect]
     Active Substance: ABIRATERONE ACETATE
     Indication: NEOPLASM MALIGNANT
     Route: 048
     Dates: start: 20160224
  7. POT CL [Concomitant]
  8. PANTOPRAZOLE [Concomitant]
     Active Substance: PANTOPRAZOLE SODIUM
  9. VITAMIN D [Concomitant]
     Active Substance: CHOLECALCIFEROL
  10. TRADJENTA [Concomitant]
     Active Substance: LINAGLIPTIN
  11. PREDNISONE. [Concomitant]
     Active Substance: PREDNISONE
  12. MAGNESIUM [Concomitant]
     Active Substance: MAGNESIUM
  13. ATENOLOL. [Concomitant]
     Active Substance: ATENOLOL
  14. FINASTERIDE. [Concomitant]
     Active Substance: FINASTERIDE
  15. ZOMETA [Concomitant]
     Active Substance: ZOLEDRONIC ACID
  16. CALCIUM CARB [Concomitant]
  17. LOSARTAN POT [Concomitant]
     Active Substance: LOSARTAN POTASSIUM
  18. VITAMIN B12 [Concomitant]
     Active Substance: CYANOCOBALAMIN
  19. ASPIRIN. [Concomitant]
     Active Substance: ASPIRIN
  20. ACYCLOVIR. [Concomitant]
     Active Substance: ACYCLOVIR
  21. HYDROCHLOROT [Concomitant]
     Active Substance: HYDROCHLOROTHIAZIDE

REACTIONS (2)
  - Nausea [None]
  - Drug dose omission [None]

NARRATIVE: CASE EVENT DATE: 201606
